FAERS Safety Report 13381933 (Version 1)
Quarter: 2017Q1

REPORT INFORMATION
  Report Type: Report from Study
  Country: CO (occurrence: CO)
  Receive Date: 20170329
  Receipt Date: 20170329
  Transmission Date: 20170429
  Serious: Yes (Hospitalization, Other)
  Sender: FDA-Public Use
  Company Number: CO-BAYER-2016-085593

PATIENT
  Sex: Male

DRUGS (2)
  1. METOPROLOL. [Concomitant]
     Active Substance: METOPROLOL
     Dosage: 50 MG, QD
  2. NEXAVAR [Suspect]
     Active Substance: SORAFENIB
     Indication: RENAL CELL CARCINOMA
     Dosage: 800 MG, QD
     Route: 048
     Dates: end: 201612

REACTIONS (6)
  - Diarrhoea [Not Recovered/Not Resolved]
  - Drug ineffective [None]
  - Mass [None]
  - Metastases to bone [Recovering/Resolving]
  - Ocular neoplasm [None]
  - Dizziness [Not Recovered/Not Resolved]
